FAERS Safety Report 6060887-6 (Version None)
Quarter: 2009Q1

REPORT INFORMATION
  Report Type: 
  Country: None (occurrence: None)
  Receive Date: 20090202
  Receipt Date: 20090121
  Transmission Date: 20090719
  Serious: Yes (Hospitalization)
  Sender: FDA-Public Use
  Company Number: JP-ELI_LILLY_AND_COMPANY-JP200901004205

PATIENT
  Age: 71 Year
  Sex: Male
  Weight: 67.2 kg

DRUGS (1)
  1. GEMZAR [Suspect]
     Indication: PANCREATIC CARCINOMA STAGE III
     Dosage: 1600 MG, OTHER
     Route: 042
     Dates: start: 20060101, end: 20060901

REACTIONS (2)
  - APPENDICITIS [None]
  - HAEMOLYTIC URAEMIC SYNDROME [None]
